FAERS Safety Report 7095421-5 (Version None)
Quarter: 2010Q4

REPORT INFORMATION
  Report Type: 
  Country: None (occurrence: None)
  Receive Date: 20101111
  Receipt Date: 20101105
  Transmission Date: 20110411
  Serious: Yes (Death)
  Sender: FDA-Public Use
  Company Number: NL-BRISTOL-MYERS SQUIBB COMPANY-15372022

PATIENT
  Age: 33 Year
  Sex: Male
  Weight: 97 kg

DRUGS (5)
  1. ABILIFY [Suspect]
     Indication: PSYCHOTIC DISORDER
     Dates: start: 20100929
  2. BIPERIDEN HYDROCHLORIDE TAB [Suspect]
  3. TEMAZEPAM [Suspect]
  4. SERTRALINE HYDROCHLORIDE [Suspect]
  5. CISORDINOL [Suspect]

REACTIONS (1)
  - SUDDEN DEATH [None]
